FAERS Safety Report 16536303 (Version 3)
Quarter: 2019Q4

REPORT INFORMATION
  Report Type: Spontaneous
  Country: US (occurrence: US)
  Receive Date: 20190705
  Receipt Date: 20191028
  Transmission Date: 20200122
  Serious: Yes (Death, Other)
  Sender: FDA-Public Use
  Company Number: US-PFIZER INC-2019277291

PATIENT
  Age: 74 Year
  Sex: Female

DRUGS (2)
  1. XALKORI [Suspect]
     Active Substance: CRIZOTINIB
     Indication: LUNG CANCER METASTATIC
     Dosage: 250 MG, DAILY
     Route: 048
     Dates: start: 201906
  2. XALKORI [Suspect]
     Active Substance: CRIZOTINIB
     Indication: BREAST CANCER FEMALE

REACTIONS (2)
  - Neoplasm progression [Fatal]
  - Acute respiratory failure [Fatal]

NARRATIVE: CASE EVENT DATE: 201906
